FAERS Safety Report 6111511-5 (Version None)
Quarter: 2009Q1

REPORT INFORMATION
  Report Type: 
  Country: None (occurrence: None)
  Receive Date: 20090310
  Receipt Date: 20090310
  Transmission Date: 20090719
  Serious: Yes (Disabling)
  Sender: FDA-Public Use
  Company Number: None

PATIENT
  Sex: Female
  Weight: 68.0396 kg

DRUGS (1)
  1. LEVAQUIN [Suspect]
     Indication: NEPHROLITHIASIS
     Dosage: PO
     Route: 048
     Dates: start: 20070210, end: 20070228

REACTIONS (8)
  - ARTHRITIS [None]
  - ENTHESOPATHY [None]
  - JOINT SWELLING [None]
  - MUSCULOSKELETAL PAIN [None]
  - SCAR [None]
  - TENDON PAIN [None]
  - TENDON RUPTURE [None]
  - TREATMENT FAILURE [None]
